FAERS Safety Report 12591061 (Version 2)
Quarter: 2016Q3

REPORT INFORMATION
  Report Type: Spontaneous
  Country: US (occurrence: US)
  Receive Date: 20160726
  Receipt Date: 20160728
  Transmission Date: 20161109
  Serious: No
  Sender: FDA-Public Use
  Company Number: US-UNITED THERAPEUTICS-UNT-2015-015824

PATIENT
  Age: 78 Year
  Sex: Female
  Weight: 58.96 kg

DRUGS (1)
  1. REMODULIN [Suspect]
     Active Substance: TREPROSTINIL
     Indication: PULMONARY HYPERTENSION
     Dosage: 0.055 ?G/KG/MIN, CONTINUING
     Route: 041
     Dates: start: 20121016

REACTIONS (2)
  - Therapy cessation [Unknown]
  - Confusional state [Unknown]

NARRATIVE: CASE EVENT DATE: 201512
